FAERS Safety Report 4570562-2 (Version None)
Quarter: 2005Q1

REPORT INFORMATION
  Report Type: 
  Country: None (occurrence: None)
  Receive Date: 20050202
  Receipt Date: 20050120
  Transmission Date: 20050727
  Serious: No
  Sender: FDA-Public Use
  Company Number: 2005-BP-00914RO

PATIENT
  Age: 46 Year
  Sex: Female

DRUGS (4)
  1. ENDOXANA (CYCLOPHOSPHAMIDE) [Suspect]
     Indication: BREAST CANCER
  2. METHOTREXATE [Suspect]
     Indication: BREAST CANCER
  3. FLUOROURACIL [Suspect]
     Indication: BREAST CANCER
     Dosage: IV
     Route: 042
  4. TAMOXIFEN (TAMOXIFEN) [Suspect]
     Indication: BREAST CANCER

REACTIONS (5)
  - ERYTHEMA [None]
  - PAIN IN EXTREMITY [None]
  - PERIPHERAL ISCHAEMIA [None]
  - PULSE ABSENT [None]
  - SKIN DISCOLOURATION [None]
